FAERS Safety Report 16709992 (Version 1)
Quarter: 2019Q4

REPORT INFORMATION
  Report Type: Spontaneous
  Country: US (occurrence: US)
  Receive Date: 20190815
  Receipt Date: 20190815
  Transmission Date: 20200122
  Serious: Yes (Hospitalization)
  Sender: FDA-Public Use
  Company Number: None

PATIENT
  Age: 63 Year
  Sex: Female

DRUGS (18)
  1. PREGABALIN CAP 75 MG [Concomitant]
  2. FLUOXETINE TAB 20 MG [Concomitant]
  3. METRONIDAZOLE TAB 500 MG [Concomitant]
  4. METHOCARBAM TAB 750 MG [Concomitant]
  5. CEFDINIR CAP 300 MG [Concomitant]
  6. PROMETHAZINE TAB 25 MG [Concomitant]
  7. PREDNISONE TAB 2.5 MG [Concomitant]
  8. LYRICA CAP 150 MG [Concomitant]
  9. NARATRIPTAN TAB 2.5 MG [Concomitant]
  10. ARIPIPRAZOLE TAB 2 MG [Concomitant]
  11. LORONE TAB 750 MG [Concomitant]
  12. MECLOFEN SOD CAP 100 MG [Concomitant]
  13. HYDROCO/APAP TAB 7.5-325 [Concomitant]
  14. CELECOXIB CAP 200 MG [Concomitant]
  15. MONTELUKAST TAB 10 MG [Concomitant]
  16. FORTEO [Suspect]
     Active Substance: TERIPARATIDE
     Route: 058
     Dates: start: 20190405
  17. ZOLPIDEM TB 10 MG [Concomitant]
  18. APAP/CODEINE TAB 300-30 MG [Concomitant]

REACTIONS (2)
  - Fistula [None]
  - Therapy cessation [None]
